FAERS Safety Report 8234919-0 (Version None)
Quarter: 2012Q1

REPORT INFORMATION
  Report Type: 
  Country: None (occurrence: None)
  Receive Date: 20120326
  Receipt Date: 20120319
  Transmission Date: 20120608
  Serious: Yes (Other)
  Sender: FDA-Public Use
  Company Number: DE-UCBSA-052496

PATIENT
  Age: 39 Year
  Sex: Female
  Weight: 71 kg

DRUGS (9)
  1. IBUPROFEN [Concomitant]
  2. OTRIVIN [Concomitant]
     Dosage: UNSPECIFIED DOSE AS NEEDED
  3. MORPHINE SULFATE [Concomitant]
  4. DIAZEPAM [Concomitant]
  5. PREDNISOLONE [Concomitant]
  6. CIMZIA [Suspect]
     Indication: RHEUMATOID ARTHRITIS
     Route: 058
     Dates: start: 20110919, end: 20120201
  7. PREDNISONE [Concomitant]
     Dates: start: 20120101
  8. OMEPRAZOLE [Concomitant]
  9. METOCLOPRAMIDE [Concomitant]

REACTIONS (3)
  - PREGNANCY ON ORAL CONTRACEPTIVE [None]
  - ABORTION SPONTANEOUS [None]
  - PREGNANCY [None]
